FAERS Safety Report 5780286-1 (Version None)
Quarter: 2008Q2

REPORT INFORMATION
  Report Type: 
  Country: None (occurrence: None)
  Receive Date: 20080620
  Receipt Date: 20080610
  Transmission Date: 20081010
  Serious: Yes (Other)
  Sender: FDA-Public Use
  Company Number: US-JNJFOC-20080602546

PATIENT
  Sex: Female

DRUGS (6)
  1. REMICADE [Suspect]
     Indication: PSORIASIS
     Route: 042
  2. METHOTREXATE [Concomitant]
     Indication: PSORIASIS
  3. CELLCEPT [Concomitant]
     Indication: PSORIASIS
  4. LEXAPRO [Concomitant]
     Indication: ANXIETY
  5. ACEPHEX [Concomitant]
     Indication: GASTROOESOPHAGEAL REFLUX DISEASE
  6. TRAZODONE HCL [Concomitant]
     Indication: ANXIETY

REACTIONS (2)
  - NIGHT SWEATS [None]
  - UVEITIS [None]
